FAERS Safety Report 6561406-8 (Version None)
Quarter: 2010Q1

REPORT INFORMATION
  Report Type: 
  Country: None (occurrence: None)
  Receive Date: 20100130
  Receipt Date: 20091029
  Transmission Date: 20100710
  Serious: No
  Sender: FDA-Public Use
  Company Number: US-ABBOTT-09P-163-0602763-00

PATIENT
  Sex: Male

DRUGS (2)
  1. HUMIRA [Suspect]
     Indication: RHEUMATOID ARTHRITIS
     Dates: start: 20090801
  2. HUMIRA [Suspect]
     Dates: start: 20091019

REACTIONS (4)
  - ARTHRALGIA [None]
  - LARYNGITIS [None]
  - MIDDLE EAR EFFUSION [None]
  - SINUSITIS [None]
